FAERS Safety Report 25603234 (Version 2)
Quarter: 2025Q3

REPORT INFORMATION
  Report Type: Spontaneous
  Country: JP (occurrence: JP)
  Receive Date: 20250724
  Receipt Date: 20250828
  Transmission Date: 20251020
  Serious: Yes (Hospitalization, Other)
  Sender: BRISTOL-MYERS SQUIBB COMPANY
  Company Number: JP-BRISTOL-MYERS SQUIBB COMPANY-2025-101138

PATIENT
  Age: 56 Year
  Sex: Male
  Weight: 67.2 kg

DRUGS (12)
  1. YERVOY [Suspect]
     Active Substance: IPILIMUMAB
     Indication: Malignant melanoma
     Dosage: 1 COURSE
     Route: 041
     Dates: start: 20240508, end: 20240508
  2. YERVOY [Suspect]
     Active Substance: IPILIMUMAB
     Dosage: 2 COURSE
     Route: 041
     Dates: start: 20240529, end: 20240529
  3. YERVOY [Suspect]
     Active Substance: IPILIMUMAB
     Dosage: 3 COURSE
     Route: 041
     Dates: start: 20240626, end: 20240626
  4. OPDIVO [Suspect]
     Active Substance: NIVOLUMAB
     Indication: Malignant melanoma
     Dosage: 1 COURSE
     Route: 041
     Dates: start: 20240508, end: 20240508
  5. OPDIVO [Suspect]
     Active Substance: NIVOLUMAB
     Dosage: 2 COURSE
     Route: 041
     Dates: start: 20240529, end: 20240529
  6. OPDIVO [Suspect]
     Active Substance: NIVOLUMAB
     Dosage: 3 COURSE
     Route: 041
     Dates: start: 20240626, end: 20240626
  7. OPDIVO [Suspect]
     Active Substance: NIVOLUMAB
     Route: 041
     Dates: start: 20240925, end: 20250709
  8. DAPAGLIFLOZIN [Suspect]
     Active Substance: DAPAGLIFLOZIN
     Indication: Product used for unknown indication
     Route: 048
  9. OLMESARTAN [Concomitant]
     Active Substance: OLMESARTAN
     Indication: Product used for unknown indication
     Route: 048
  10. OMEPRAZOLE [Concomitant]
     Active Substance: OMEPRAZOLE
     Indication: Product used for unknown indication
     Route: 048
  11. ROSUVASTATIN [Concomitant]
     Active Substance: ROSUVASTATIN
     Indication: Product used for unknown indication
     Route: 048
  12. MIYA-BM [Concomitant]
     Active Substance: CLOSTRIDIUM BUTYRICUM SPORES STRAIN M-55
     Indication: Product used for unknown indication
     Route: 048

REACTIONS (2)
  - Meningitis [Recovered/Resolved with Sequelae]
  - Toxic skin eruption [Unknown]

NARRATIVE: CASE EVENT DATE: 20240609
